FAERS Safety Report 13073243 (Version 1)
Quarter: 2016Q4

REPORT INFORMATION
  Report Type: Spontaneous
  Country: CN (occurrence: CN)
  Receive Date: 20161229
  Receipt Date: 20161229
  Transmission Date: 20170207
  Serious: Yes (Hospitalization)
  Sender: FDA-Public Use
  Company Number: CN-SA-2016SA231832

PATIENT
  Age: 30 Year
  Sex: Female

DRUGS (2)
  1. PLAVIX [Suspect]
     Active Substance: CLOPIDOGREL BISULFATE
     Route: 048
     Dates: start: 20160511, end: 20160615
  2. ASPIRIN. [Suspect]
     Active Substance: ASPIRIN
     Route: 048
     Dates: start: 20160511, end: 20160615

REACTIONS (15)
  - Reflexes abnormal [Unknown]
  - Haemorrhage [Recovering/Resolving]
  - Intracranial pressure increased [Unknown]
  - Hypoproteinaemia [Unknown]
  - Hyponatraemia [Unknown]
  - Lethargy [Unknown]
  - Abnormal behaviour [Unknown]
  - Hypochloraemia [Unknown]
  - Coma [Unknown]
  - Eye disorder [Unknown]
  - Altered state of consciousness [Unknown]
  - Pyrexia [Unknown]
  - Seizure [Unknown]
  - Cerebellar infarction [Recovering/Resolving]
  - Computerised tomogram abnormal [Unknown]

NARRATIVE: CASE EVENT DATE: 2016
